FAERS Safety Report 17507961 (Version 3)
Quarter: 2020Q2

REPORT INFORMATION
  Report Type: Spontaneous
  Country: US (occurrence: US)
  Receive Date: 20200306
  Receipt Date: 20200402
  Transmission Date: 20200713
  Serious: No
  Sender: FDA-Public Use
  Company Number: US-GLAXOSMITHKLINE-US2020AMR037708

PATIENT
  Age: 43 Year
  Sex: Female
  Weight: 83.45 kg

DRUGS (2)
  1. NUCALA [Suspect]
     Active Substance: MEPOLIZUMAB
     Indication: ASTHMA
     Dosage: UNK
     Route: 058
     Dates: start: 20191223
  2. NUCALA [Suspect]
     Active Substance: MEPOLIZUMAB
     Indication: ASTHMA
     Dosage: UNK
     Route: 058
     Dates: start: 20200102

REACTIONS (2)
  - Injection site swelling [Recovering/Resolving]
  - Injection site bruising [Recovering/Resolving]

NARRATIVE: CASE EVENT DATE: 20200120
